FAERS Safety Report 9439216 (Version 3)
Quarter: 2014Q1

REPORT INFORMATION
  Report Type: Report from Study
  Country: GB (occurrence: GB)
  Receive Date: 20130804
  Receipt Date: 20140310
  Transmission Date: 20141002
  Serious: Yes (Death, Life-Threatening, Hospitalization, Disabling, Other)
  Sender: FDA-Public Use
  Company Number: GB-JNJFOC-20130718450

PATIENT
  Age: 85 Year
  Sex: Female
  Weight: 65 kg

DRUGS (11)
  1. XARELTO [Suspect]
     Indication: ATRIAL FIBRILLATION
     Route: 048
     Dates: start: 20130711, end: 20130726
  2. XARELTO [Suspect]
     Indication: CEREBROVASCULAR ACCIDENT PROPHYLAXIS
     Route: 048
     Dates: start: 20130711, end: 20130726
  3. SIMVASTATIN [Concomitant]
     Route: 065
     Dates: end: 20130726
  4. CALCICHEW D3 [Concomitant]
     Route: 065
     Dates: end: 20130726
  5. DOSULEPIN [Concomitant]
     Route: 065
     Dates: end: 20130726
  6. LISINOPRIL [Concomitant]
     Route: 065
     Dates: end: 20130726
  7. DIGOXIN [Concomitant]
     Route: 065
     Dates: end: 20130725
  8. FUROSEMIDE [Concomitant]
     Route: 065
     Dates: end: 20130726
  9. BISOPROLOL [Concomitant]
     Route: 065
     Dates: end: 20130726
  10. CO-AMILOFRUSE [Concomitant]
     Dosage: 5/40 MG
     Route: 065
     Dates: end: 20130726
  11. ALENDRONATE SODIUM [Concomitant]
     Dosage: 5/40 MG
     Route: 065
     Dates: end: 20130726

REACTIONS (2)
  - Fall [Fatal]
  - Cerebral haemorrhage [Fatal]
